FAERS Safety Report 7083343-5 (Version None)
Quarter: 2010Q4

REPORT INFORMATION
  Report Type: 
  Country: None (occurrence: None)
  Receive Date: 20101104
  Receipt Date: 20101102
  Transmission Date: 20110411
  Serious: Yes (Death, Other)
  Sender: FDA-Public Use
  Company Number: PHHY2010JP74212

PATIENT
  Sex: Female
  Weight: 40 kg

DRUGS (3)
  1. DIOVAN [Suspect]
     Indication: HYPERTENSION
     Dosage: 160 MG, QD
     Route: 048
     Dates: start: 20081112
  2. OLMETEC [Concomitant]
     Indication: HYPERTENSION
     Dosage: 40 MG, UNK
     Route: 048
     Dates: start: 20081002
  3. THEO-DUR [Concomitant]
     Dosage: 100 MG, UNK
     Route: 048
     Dates: start: 20080130

REACTIONS (2)
  - BLOOD PRESSURE ABNORMAL [None]
  - DEATH [None]
